FAERS Safety Report 7572964-9 (Version None)
Quarter: 2011Q2

REPORT INFORMATION
  Report Type: 
  Country: None (occurrence: None)
  Receive Date: 20110627
  Receipt Date: 20110620
  Transmission Date: 20111010
  Serious: Yes (Death, Other)
  Sender: FDA-Public Use
  Company Number: JP-JNJFOC-20110602352

PATIENT
  Sex: Male
  Weight: 61 kg

DRUGS (10)
  1. FENTANYL-100 [Suspect]
     Route: 062
     Dates: start: 20110510, end: 20110512
  2. FENTANYL-100 [Suspect]
     Indication: CANCER PAIN
     Route: 062
     Dates: start: 20110425, end: 20110427
  3. FENTANYL-100 [Suspect]
     Route: 062
     Dates: start: 20110501, end: 20110509
  4. MORPHINE HCL ELIXIR [Suspect]
     Indication: CANCER PAIN
     Route: 042
     Dates: start: 20110513
  5. TEGRETOL [Suspect]
     Indication: CONVULSION PROPHYLAXIS
     Route: 048
     Dates: start: 20110425, end: 20110510
  6. GASMOTIN [Concomitant]
     Indication: GASTRIC CANCER
     Route: 048
     Dates: end: 20110310
  7. FENTANYL-100 [Suspect]
     Route: 062
     Dates: start: 20110428, end: 20110430
  8. TEGRETOL [Suspect]
     Route: 048
     Dates: start: 20110224, end: 20110424
  9. PROHEPARUM [Concomitant]
     Indication: GASTRIC CANCER
     Dosage: 3 DF
     Route: 048
     Dates: end: 20110510
  10. POLAPREZINC [Concomitant]
     Indication: GASTRIC CANCER
     Route: 048
     Dates: end: 20110510

REACTIONS (3)
  - DRUG EFFECT DECREASED [None]
  - GASTRIC CANCER [None]
  - RESPIRATORY DEPRESSION [None]
